FAERS Safety Report 10619339 (Version 2)
Quarter: 2014Q4

REPORT INFORMATION
  Report Type: Report from Study
  Country: US (occurrence: US)
  Receive Date: 20141202
  Receipt Date: 20141208
  Transmission Date: 20150529
  Serious: No
  Sender: FDA-Public Use
  Company Number: US-ACTELION-A-US2014-108806

PATIENT
  Age: 75 Year
  Sex: Female

DRUGS (4)
  1. MACITENTAN [Suspect]
     Active Substance: MACITENTAN
     Indication: PULMONARY HYPERTENSION
     Dosage: 10 MG, UNK
     Route: 048
     Dates: start: 20141104
  2. TYVASO [Concomitant]
     Active Substance: TREPROSTINIL
  3. RIOCIGUAT [Concomitant]
     Active Substance: RIOCIGUAT
  4. COUMADIN [Concomitant]
     Active Substance: WARFARIN SODIUM

REACTIONS (1)
  - Dyspnoea [Unknown]
